FAERS Safety Report 4530850-2 (Version None)
Quarter: 2004Q4

REPORT INFORMATION
  Report Type: 
  Country: None (occurrence: None)
  Receive Date: 20041217
  Receipt Date: 20041209
  Transmission Date: 20050328
  Serious: Yes (Other)
  Sender: FDA-Public Use
  Company Number: US-MERCK-0412USA01590

PATIENT

DRUGS (1)
  1. ZOCOR [Suspect]
     Route: 048

REACTIONS (8)
  - ARTHRALGIA [None]
  - COUGH [None]
  - DYSPNOEA [None]
  - FALL [None]
  - MUSCLE CRAMP [None]
  - MYOCARDIAL INFARCTION [None]
  - PAIN [None]
  - PAIN IN EXTREMITY [None]
